FAERS Safety Report 8599633-0 (Version None)
Quarter: 2012Q3

REPORT INFORMATION
  Report Type: 
  Country: None (occurrence: None)
  Receive Date: 20120816
  Receipt Date: 20120813
  Transmission Date: 20120928
  Serious: No
  Sender: FDA-Public Use
  Company Number: US-PFIZER INC-2012198549

PATIENT
  Age: 52 Year
  Sex: Male
  Weight: 63.492 kg

DRUGS (4)
  1. LYRICA [Suspect]
     Indication: PAIN MANAGEMENT
     Dosage: UNK
     Dates: start: 20100101
  2. LYRICA [Suspect]
     Dosage: 300 MG, DAILY
     Dates: end: 20111101
  3. PROTONIX [Concomitant]
     Indication: BARRETT'S OESOPHAGUS
     Dosage: 40 MG, DAILY
     Dates: start: 20100101
  4. MORPHINE [Concomitant]
     Indication: PAIN
     Dosage: 100 MG, 3X/DAY

REACTIONS (1)
  - DRUG INEFFECTIVE [None]
